FAERS Safety Report 26035425 (Version 2)
Quarter: 2025Q4

REPORT INFORMATION
  Report Type: Spontaneous
  Country: EU (occurrence: EU)
  Receive Date: 20251112
  Receipt Date: 20251205
  Transmission Date: 20260118
  Serious: Yes (Other)
  Sender: ROCHE
  Company Number: EU-ROCHE-10000430388

PATIENT
  Age: 23 Year
  Sex: Female

DRUGS (2)
  1. EVRYSDI [Suspect]
     Active Substance: RISDIPLAM
     Indication: Spinal muscular atrophy
     Route: 050
  2. EVRYSDI [Suspect]
     Active Substance: RISDIPLAM
     Dosage: SINCE MAY
     Route: 050

REACTIONS (1)
  - Cerebrovascular accident [Unknown]
